FAERS Safety Report 4575101-8 (Version None)
Quarter: 2005Q1

REPORT INFORMATION
  Report Type: 
  Country: None (occurrence: None)
  Receive Date: 20050208
  Receipt Date: 20050128
  Transmission Date: 20050727
  Serious: Yes (Other)
  Sender: FDA-Public Use
  Company Number: AU-GLAXOSMITHKLINE-B0370098A

PATIENT
  Age: 15 Year
  Sex: Female
  Weight: 50 kg

DRUGS (2)
  1. IMIGRAN [Suspect]
     Indication: MIGRAINE
     Route: 048
     Dates: start: 19981022, end: 19981022
  2. ACETAMINOPHEN W/ CODEINE [Concomitant]
     Indication: MIGRAINE
     Route: 048

REACTIONS (5)
  - ANAPHYLACTOID REACTION [None]
  - FACE OEDEMA [None]
  - HYPOTENSION [None]
  - RASH ERYTHEMATOUS [None]
  - VOMITING [None]
